FAERS Safety Report 23227337 (Version 1)
Quarter: 2023Q4

REPORT INFORMATION
  Report Type: Spontaneous
  Country: FR (occurrence: FR)
  Receive Date: 20231124
  Receipt Date: 20231124
  Transmission Date: 20240110
  Serious: Yes (Other)
  Sender: FDA-Public Use
  Company Number: None

PATIENT
  Age: 30 Year
  Sex: Female
  Weight: 58 kg

DRUGS (11)
  1. PIPERACILLIN SODIUM\TAZOBACTAM SODIUM [Suspect]
     Active Substance: PIPERACILLIN SODIUM\TAZOBACTAM SODIUM
     Indication: Sepsis
     Dosage: 16 G, 1X/DAY
     Route: 042
     Dates: start: 20230704, end: 20230706
  2. SIMULECT [Suspect]
     Active Substance: BASILIXIMAB
     Indication: Prophylaxis
     Dosage: 20 MG, 1X/DAY
     Route: 042
     Dates: start: 20230629, end: 20230703
  3. ONDANSETRON [Suspect]
     Active Substance: ONDANSETRON
     Indication: Prophylaxis
     Dosage: 3 DF, 1X/DAY
     Route: 042
     Dates: start: 20230629, end: 20230703
  4. PREDNISONE [Suspect]
     Active Substance: PREDNISONE
     Indication: Prophylaxis
     Dosage: 55 MG, 1X/DAY
     Route: 048
     Dates: start: 20230629
  5. OXYBUTYNIN CHLORIDE [Suspect]
     Active Substance: OXYBUTYNIN CHLORIDE
     Indication: Pollakiuria
     Dosage: 5 MG (3 IN TOTAL)
     Route: 048
     Dates: start: 20230703, end: 20230704
  6. OXYCODONE [Suspect]
     Active Substance: OXYCODONE
     Indication: Pain
     Dosage: 5 MG (5 IN TOTAL)
     Route: 048
     Dates: start: 20230704, end: 20230708
  7. LOVENOX [Suspect]
     Active Substance: ENOXAPARIN SODIUM
     Indication: Prophylaxis
     Dosage: 1 DF, 1X/DAY
     Route: 058
     Dates: start: 20230629, end: 20230714
  8. AMLODIPINE [Suspect]
     Active Substance: AMLODIPINE BESYLATE
     Indication: Hypertension
     Dosage: 10 MG, 1X/DAY
     Route: 048
     Dates: start: 20230629, end: 20230728
  9. PHLOROGLUCINOL [Suspect]
     Active Substance: PHLOROGLUCINOL
     Indication: Pain
     Dosage: 80 MG (2 IN TOTAL)
     Route: 048
     Dates: start: 20230703, end: 20230703
  10. AMIKACIN [Suspect]
     Active Substance: AMIKACIN
     Indication: Sepsis
     Dosage: 850 MG, SINGLE
     Route: 042
     Dates: start: 20230703, end: 20230703
  11. CEFTRIAXONE [Suspect]
     Active Substance: CEFTRIAXONE\CEFTRIAXONE SODIUM
     Indication: Sepsis
     Dosage: 1000 MG, SINGLE
     Route: 042
     Dates: start: 20230703, end: 20230703

REACTIONS (1)
  - Hyperacusis [Recovering/Resolving]

NARRATIVE: CASE EVENT DATE: 20230701
